FAERS Safety Report 4352573-5 (Version None)
Quarter: 2004Q2

REPORT INFORMATION
  Report Type: 
  Country: None (occurrence: None)
  Receive Date: 20040503
  Receipt Date: 20040503
  Transmission Date: 20050107
  Serious: Yes (Other)
  Sender: FDA-Public Use
  Company Number: None

PATIENT
  Age: 55 Year
  Sex: Female
  Weight: 72.5755 kg

DRUGS (1)
  1. AMIFOSTINE [Suspect]
     Indication: RECTAL CANCER
     Dosage: 500 MG DAILY SUBCUTAN
     Route: 058

REACTIONS (3)
  - NAUSEA [None]
  - RASH PRURITIC [None]
  - VOMITING [None]
